APPROVED DRUG PRODUCT: RIBAVIRIN
Active Ingredient: RIBAVIRIN
Strength: 6GM/VIAL
Dosage Form/Route: FOR SOLUTION;INHALATION
Application: A207366 | Product #001
Applicant: NAVINTA LLC
Approved: Oct 6, 2016 | RLD: No | RS: Yes | Type: RX